FAERS Safety Report 7252226-X (Version None)
Quarter: 2011Q1

REPORT INFORMATION
  Report Type: 
  Country: None (occurrence: None)
  Receive Date: 20110129
  Receipt Date: 20100402
  Transmission Date: 20110831
  Serious: No
  Sender: FDA-Public Use
  Company Number: US-ABBOTT-10P-163-0636393-00

PATIENT
  Sex: Male
  Weight: 72.64 kg

DRUGS (6)
  1. PROPECIA [Concomitant]
     Indication: ALOPECIA
  2. HUMIRA [Suspect]
     Indication: RHEUMATOID ARTHRITIS
     Dates: start: 20050101
  3. PRILOSEC [Concomitant]
     Indication: DIVERTICULITIS
  4. PRILOSEC [Concomitant]
     Indication: GASTROOESOPHAGEAL REFLUX DISEASE
  5. PROPECIA [Concomitant]
     Indication: PROPHYLAXIS
  6. AMBIEN [Concomitant]
     Indication: INSOMNIA

REACTIONS (4)
  - INJECTION SITE PAIN [None]
  - PAIN [None]
  - INJECTION SITE HAEMORRHAGE [None]
  - PSORIASIS [None]
